FAERS Safety Report 8544669-9 (Version None)
Quarter: 2012Q3

REPORT INFORMATION
  Report Type: 
  Country: None (occurrence: None)
  Receive Date: 20120727
  Receipt Date: 20120727
  Transmission Date: 20120928
  Serious: Yes (Hospitalization)
  Sender: FDA-Public Use
  Company Number: MX-ROCHE-1079464

PATIENT
  Age: 49 Year
  Sex: Male
  Weight: 76.5 kg

DRUGS (2)
  1. ACTEMRA [Suspect]
     Indication: RHEUMATOID ARTHRITIS
     Dosage: DATE OF MOST RECENT DOSE OF OPEN LABEL STUDY IS 04/JUN/2012
     Route: 058
     Dates: start: 20111130
  2. ACTEMRA [Suspect]
     Indication: RHEUMATOID ARTHRITIS
     Dosage: DATE OF MOST RECENT DOSE OF BLINDED STUDY IS 01/NOV/2011
     Route: 058
     Dates: start: 20110907

REACTIONS (1)
  - GASTRITIS EROSIVE [None]
